FAERS Safety Report 7999688-8 (Version None)
Quarter: 2011Q4

REPORT INFORMATION
  Report Type: 
  Country: None (occurrence: None)
  Receive Date: 20111221
  Receipt Date: 20111213
  Transmission Date: 20120403
  Serious: Yes (Other)
  Sender: FDA-Public Use
  Company Number: GB-ASTRAZENECA-2011SE75245

PATIENT
  Age: 21 Year
  Sex: Male

DRUGS (7)
  1. MEROPENEM [Suspect]
     Route: 042
     Dates: start: 20110101
  2. CEFTAZIDIME [Concomitant]
  3. GENTAMICIN [Concomitant]
  4. GENTAMICIN [Concomitant]
     Dates: start: 20111101
  5. MEROPENEM [Suspect]
     Route: 042
     Dates: start: 20110901
  6. MEROPENEM [Suspect]
     Route: 042
  7. CEFTAZIDIME [Concomitant]
     Dates: start: 20111101

REACTIONS (3)
  - PSYCHOTIC BEHAVIOUR [None]
  - FEELING ABNORMAL [None]
  - AMNESIA [None]
